FAERS Safety Report 10365735 (Version 1)
Quarter: 2014Q3

REPORT INFORMATION
  Report Type: Report from Study
  Country: US (occurrence: US)
  Receive Date: 20140806
  Receipt Date: 20140806
  Transmission Date: 20150326
  Serious: Yes (Other)
  Sender: FDA-Public Use
  Company Number: US-SA-2014SA102411

PATIENT
  Age: 75 Year
  Sex: Male

DRUGS (2)
  1. LANTUS [Suspect]
     Active Substance: INSULIN GLARGINE
     Indication: TYPE 2 DIABETES MELLITUS
     Dosage: DOSE:18 UNIT(S)
     Route: 065
     Dates: start: 2009
  2. NOVOLOG [Concomitant]
     Active Substance: INSULIN ASPART

REACTIONS (1)
  - Parkinson^s disease [Not Recovered/Not Resolved]

NARRATIVE: CASE EVENT DATE: 2010
